FAERS Safety Report 22600651 (Version 1)
Quarter: 2023Q2

REPORT INFORMATION
  Report Type: Spontaneous
  Country: US (occurrence: US)
  Receive Date: 20230614
  Receipt Date: 20230614
  Transmission Date: 20230722
  Serious: Yes (Life-Threatening, Hospitalization, Other)
  Sender: FDA-Public Use
  Company Number: US-009507513-2306USA005410

PATIENT
  Sex: Male

DRUGS (6)
  1. TEMODAR [Suspect]
     Active Substance: TEMOZOLOMIDE
     Indication: Glioblastoma
     Dosage: 140 MG/DAY FOR 42 DAYS
     Route: 048
     Dates: start: 20230103, end: 20230214
  2. ZARXIO [Suspect]
     Active Substance: FILGRASTIM-SNDZ
     Indication: Neutropenia
     Dosage: 2 DOSES AT TIME, (4 DOSES)
     Dates: start: 2023
  3. MORNIFLUMATE [Concomitant]
     Active Substance: MORNIFLUMATE
  4. KEPPRA [Concomitant]
     Active Substance: LEVETIRACETAM
  5. PREDNISONE [Concomitant]
     Active Substance: PREDNISONE
  6. IMMUNE GLOBULIN NOS [Concomitant]
     Active Substance: IMMUNE GLOBULIN NOS

REACTIONS (2)
  - Neutropenia [Not Recovered/Not Resolved]
  - Fatigue [Unknown]

NARRATIVE: CASE EVENT DATE: 20230101
